FAERS Safety Report 11644645 (Version 1)
Quarter: 2015Q4

REPORT INFORMATION
  Report Type: Spontaneous
  Country: US (occurrence: US)
  Receive Date: 20151020
  Receipt Date: 20151020
  Transmission Date: 20160304
  Serious: Yes (Other)
  Sender: FDA-Public Use
  Company Number: US-TEVA-601487USA

PATIENT

DRUGS (2)
  1. GEMCITABINE [Suspect]
     Active Substance: GEMCITABINE\GEMCITABINE HYDROCHLORIDE
     Indication: TRANSITIONAL CELL CARCINOMA URETHRA
     Dosage: ON DAY 1 AND 8 OF EVERY 3 WEEK CYCLE
     Route: 065
  2. VINORELBINE [Suspect]
     Active Substance: VINORELBINE\VINORELBINE TARTRATE
     Indication: TRANSITIONAL CELL CARCINOMA URETHRA
     Dosage: ON DAY 1 AND 8 OF EVERY 3 WEEK CYCLE
     Route: 065

REACTIONS (1)
  - Acute kidney injury [Unknown]
